FAERS Safety Report 6653469-6 (Version None)
Quarter: 2010Q1

REPORT INFORMATION
  Report Type: 
  Country: None (occurrence: None)
  Receive Date: 20100326
  Receipt Date: 20100318
  Transmission Date: 20100710
  Serious: Yes (Other)
  Sender: FDA-Public Use
  Company Number: US-JNJFOC-20100305964

PATIENT
  Sex: Female
  Weight: 111.59 kg

DRUGS (4)
  1. DURAGESIC-100 [Suspect]
     Indication: PAIN
     Route: 062
  2. EFFEXOR XR [Concomitant]
     Indication: DEPRESSION
     Route: 048
  3. TEGRETOL [Concomitant]
     Indication: PAIN
     Route: 048
  4. AMITRIPTYLINE HCL [Concomitant]
     Indication: PAIN
     Route: 048

REACTIONS (4)
  - DRUG INEFFECTIVE [None]
  - FALL [None]
  - PRODUCT ADHESION ISSUE [None]
  - WRONG TECHNIQUE IN DRUG USAGE PROCESS [None]
